FAERS Safety Report 4613995-8 (Version None)
Quarter: 2005Q1

REPORT INFORMATION
  Report Type: 
  Country: None (occurrence: None)
  Receive Date: 20050315
  Receipt Date: 20050223
  Transmission Date: 20050727
  Serious: No
  Sender: FDA-Public Use
  Company Number: 10433

PATIENT
  Sex: Female

DRUGS (9)
  1. CARBOPLATIN [Suspect]
     Indication: CERVIX CARCINOMA
     Dosage: 5 AUC
  2. PACLITAXEL [Suspect]
     Indication: CERVIX CARCINOMA
     Dosage: 175 MG/M2
  3. IFOSFAMIDE [Suspect]
     Indication: CERVIX CARCINOMA
     Dosage: 3 MG/M2
  4. ONDANSETRON [Concomitant]
  5. GRANISETRON [Concomitant]
  6. DEXAMETHASONE [Concomitant]
  7. CYMETIDINE [Concomitant]
  8. DIPHENHYDRAMINE [Concomitant]
  9. MESNA [Concomitant]

REACTIONS (1)
  - FATIGUE [None]
